FAERS Safety Report 4797638-9 (Version None)
Quarter: 2005Q4

REPORT INFORMATION
  Report Type: 
  Country: None (occurrence: None)
  Receive Date: 20051013
  Receipt Date: 20030407
  Transmission Date: 20060501
  Serious: Yes (Death, Hospitalization)
  Sender: FDA-Public Use
  Company Number: US-MERCK-0304USA00759

PATIENT
  Age: 95 Year
  Sex: Female
  Weight: 41 kg

DRUGS (3)
  1. VIOXX [Suspect]
     Indication: OSTEOARTHRITIS
     Route: 048
     Dates: end: 20010816
  2. PEPCID [Concomitant]
     Route: 048
  3. IRON (UNSPECIFIED) [Concomitant]
     Route: 065

REACTIONS (11)
  - ACTINIC KERATOSIS [None]
  - BASAL CELL CARCINOMA [None]
  - CATARACT [None]
  - DRUG INEFFECTIVE [None]
  - DYSPNOEA [None]
  - HAEMORRHAGIC STROKE [None]
  - HYPERTENSION [None]
  - MACULAR DEGENERATION [None]
  - OEDEMA PERIPHERAL [None]
  - SEBORRHOEIC KERATOSIS [None]
  - SQUAMOUS CELL CARCINOMA [None]
